FAERS Safety Report 4553089-3 (Version None)
Quarter: 2005Q1

REPORT INFORMATION
  Report Type: 
  Country: None (occurrence: None)
  Receive Date: 20050114
  Receipt Date: 20041115
  Transmission Date: 20050727
  Serious: Yes (Hospitalization, Congenital Anomaly, Other)
  Sender: FDA-Public Use
  Company Number: PHEH2004US12338

PATIENT
  Age: 2 Month
  Sex: 0

DRUGS (2)
  1. STEROIDS NOS [Suspect]
     Indication: RASH GENERALISED
     Dosage: UNK, QD
  2. ELIDEL [Suspect]
     Indication: RASH GENERALISED
     Dosage: UNK, QD
     Route: 061

REACTIONS (7)
  - CONGENITAL ANOMALY [None]
  - IMMUNOSUPPRESSION [None]
  - LACTOSE INTOLERANCE [None]
  - LIFE SUPPORT [None]
  - RASH [None]
  - RESPIRATORY DISORDER [None]
  - ZINC DEFICIENCY [None]
